FAERS Safety Report 25600895 (Version 2)
Quarter: 2025Q3

REPORT INFORMATION
  Report Type: Spontaneous
  Country: BR (occurrence: BR)
  Receive Date: 20250724
  Receipt Date: 20250818
  Transmission Date: 20251021
  Serious: Yes (Hospitalization, Other)
  Sender: NOVARTIS
  Company Number: BR-002147023-NVSC2025BR105224

PATIENT
  Sex: Female

DRUGS (5)
  1. ENTRESTO [Suspect]
     Active Substance: SACUBITRIL\VALSARTAN
     Indication: Product used for unknown indication
     Dosage: UNK, Q12H (24 MG + 26 MG COATED TABLETCT BL AL AL X 28))
     Route: 065
  2. SIMVASTATIN [Suspect]
     Active Substance: SIMVASTATIN
     Indication: Product used for unknown indication
     Route: 065
  3. CARVEDILOL [Concomitant]
     Active Substance: CARVEDILOL
     Indication: Product used for unknown indication
     Route: 065
  4. SPIRONOLACTONE [Concomitant]
     Active Substance: SPIRONOLACTONE
     Indication: Product used for unknown indication
     Route: 065
  5. Daflon [Concomitant]
     Indication: Product used for unknown indication
     Route: 065

REACTIONS (8)
  - Malaise [Unknown]
  - Carotid artery stenosis [Unknown]
  - Aortic aneurysm [Recovering/Resolving]
  - Cardiac failure [Unknown]
  - Drug ineffective [Recovered/Resolved]
  - Therapeutic product effect decreased [Unknown]
  - Blood pressure inadequately controlled [Unknown]
  - Fatigue [Unknown]

NARRATIVE: CASE EVENT DATE: 20240101
